FAERS Safety Report 19080228 (Version 2)
Quarter: 2021Q2

REPORT INFORMATION
  Report Type: Spontaneous
  Country: US (occurrence: US)
  Receive Date: 20210401
  Receipt Date: 20210427
  Transmission Date: 20210717
  Serious: No
  Sender: FDA-Public Use
  Company Number: US-SA-2021SA107897

PATIENT
  Sex: Male

DRUGS (6)
  1. CLOBETASOL PROPIONATE. [Concomitant]
     Active Substance: CLOBETASOL PROPIONATE
  2. CLOBETASOL [Concomitant]
     Active Substance: CLOBETASOL
  3. ASPIRIN EC [Concomitant]
     Active Substance: ASPIRIN
  4. DUPIXENT [Suspect]
     Active Substance: DUPILUMAB
     Indication: DERMATITIS ATOPIC
     Dosage: 300 MG, QOW
     Route: 058
     Dates: start: 2019
  5. LISINOPRIL. [Concomitant]
     Active Substance: LISINOPRIL
  6. TRIAMCINOLONE ACETONIDE. [Concomitant]
     Active Substance: TRIAMCINOLONE ACETONIDE

REACTIONS (6)
  - Lip pain [Unknown]
  - Skin fissures [Unknown]
  - Rash [Unknown]
  - Therapeutic response shortened [Unknown]
  - Dermatitis atopic [Unknown]
  - Rash pruritic [Unknown]

NARRATIVE: CASE EVENT DATE: 2020
